FAERS Safety Report 24910371 (Version 1)
Quarter: 2025Q1

REPORT INFORMATION
  Report Type: Spontaneous
  Country: US (occurrence: None)
  Receive Date: 20250130
  Receipt Date: 20250130
  Transmission Date: 20250409
  Serious: Yes (Disabling, Other)
  Sender: FDA-CTU
  Company Number: None

PATIENT
  Age: 66 Year
  Sex: Female
  Weight: 119.25 kg

DRUGS (4)
  1. HAND SANITIZER NOS [Suspect]
     Active Substance: UNSPECIFIED INGREDIENT
  2. BUPROPION [Concomitant]
     Active Substance: BUPROPION
  3. VITAMIN D3 [Concomitant]
     Active Substance: CHOLECALCIFEROL
  4. Usnea tincture [Concomitant]

REACTIONS (13)
  - Exposure to toxic agent [None]
  - Respiratory distress [None]
  - Cough [None]
  - Dyspnoea [None]
  - Throat tightness [None]
  - Chest pain [None]
  - Rhinorrhoea [None]
  - Headache [None]
  - Dizziness [None]
  - Nausea [None]
  - Chest discomfort [None]
  - Throat irritation [None]
  - Eye pruritus [None]

NARRATIVE: CASE EVENT DATE: 20250129
